FAERS Safety Report 11932887 (Version 1)
Quarter: 2016Q1

REPORT INFORMATION
  Report Type: Report from Study
  Country: US (occurrence: US)
  Receive Date: 20160120
  Receipt Date: 20160120
  Transmission Date: 20160526
  Serious: Yes (Other)
  Sender: FDA-Public Use
  Company Number: US-AMGEN-USASL2016005272

PATIENT
  Age: 75 Year
  Sex: Female

DRUGS (2)
  1. ARAVA [Concomitant]
     Active Substance: LEFLUNOMIDE
     Dosage: UNK
  2. ENBREL [Suspect]
     Active Substance: ETANERCEPT
     Indication: POLYARTHRITIS
     Dosage: 50 MG, QWK
     Route: 065
     Dates: start: 201310

REACTIONS (14)
  - Cough [Unknown]
  - Insomnia [Unknown]
  - Alopecia [Unknown]
  - Arthralgia [Unknown]
  - Infection [Unknown]
  - Off label use [Unknown]
  - Musculoskeletal disorder [Unknown]
  - Temperature intolerance [Unknown]
  - Exostosis [Unknown]
  - Arthropathy [Unknown]
  - Joint swelling [Unknown]
  - Polyarthritis [Unknown]
  - Back pain [Unknown]
  - Depression [Unknown]
